FAERS Safety Report 4572023-3 (Version None)
Quarter: 2005Q1

REPORT INFORMATION
  Report Type: 
  Country: None (occurrence: None)
  Receive Date: 20050202
  Receipt Date: 20050131
  Transmission Date: 20050727
  Serious: Yes (Other)
  Sender: FDA-Public Use
  Company Number: 200414582BCC

PATIENT
  Age: 20 Year
  Sex: Female
  Weight: 43.0917 kg

DRUGS (1)
  1. MIDOL [Suspect]
     Indication: DYSMENORRHOEA
     Dosage: 1000/120/30 MG, ONCE, ORAL
     Route: 048
     Dates: start: 20040922

REACTIONS (4)
  - BLOOD CAFFEINE INCREASED [None]
  - CHEST PAIN [None]
  - DYSPNOEA [None]
  - HEART RATE INCREASED [None]
